FAERS Safety Report 20469266 (Version 1)
Quarter: 2022Q1

REPORT INFORMATION
  Report Type: Spontaneous
  Country: US (occurrence: None)
  Receive Date: 20220212
  Receipt Date: 20220212
  Transmission Date: 20220424
  Serious: Yes (Other)
  Sender: FDA-Public Use
  Company Number: None

PATIENT
  Age: 45 Year
  Sex: Female
  Weight: 81 kg

DRUGS (1)
  1. GLATOPA [Suspect]
     Active Substance: GLATIRAMER ACETATE
     Indication: Multiple sclerosis
     Dosage: OTHER FREQUENCY : 3X WEEK;?
     Route: 058
     Dates: start: 20210312

REACTIONS (8)
  - Chest discomfort [None]
  - Flushing [None]
  - Dyspnoea [None]
  - Sensory loss [None]
  - Muscle contractions involuntary [None]
  - Tremor [None]
  - Dysstasia [None]
  - Muscle spasms [None]

NARRATIVE: CASE EVENT DATE: 20220211
